FAERS Safety Report 21733010 (Version 2)
Quarter: 2023Q4

REPORT INFORMATION
  Report Type: Report from Study
  Country: US (occurrence: US)
  Receive Date: 20221215
  Receipt Date: 20231006
  Transmission Date: 20240109
  Serious: Yes (Other)
  Sender: FDA-Public Use
  Company Number: US-SA-SAC20221214000780

PATIENT
  Age: 65 Year
  Sex: Female

DRUGS (2)
  1. ALEMTUZUMAB [Suspect]
     Active Substance: ALEMTUZUMAB
     Indication: Multiple sclerosis
     Dosage: 12 MG, QD (COURSE 1 - 12MG IV QD X 5 DAYS)
     Route: 042
     Dates: start: 20200622, end: 20210630
  2. ALEMTUZUMAB [Suspect]
     Active Substance: ALEMTUZUMAB
     Dosage: 12 MG, QD (COURSE 2 - 12MG IV QD X 3 DAYS)
     Route: 042

REACTIONS (1)
  - Autoimmune disorder [Unknown]
